FAERS Safety Report 9373441 (Version 1)
Quarter: 2013Q2

REPORT INFORMATION
  Report Type: Report from Study
  Country: BE (occurrence: BE)
  Receive Date: 20130627
  Receipt Date: 20130627
  Transmission Date: 20140414
  Serious: Yes (Death)
  Sender: FDA-Public Use
  Company Number: BE-TEVA-415381ISR

PATIENT
  Age: 78 Year
  Sex: Female
  Weight: 72 kg

DRUGS (5)
  1. OXALIPLATIN [Suspect]
     Indication: COLORECTAL CANCER METASTATIC
     Dosage: 65 MG/M2 DAILY; 65 MG/M2, Q2W
     Route: 042
     Dates: start: 20120813, end: 20121207
  2. LEUCOVORIN CALCIUM [Suspect]
     Indication: COLORECTAL CANCER METASTATIC
     Dosage: 320 MG/M2 DAILY; 320 MG/M2, Q2W
     Route: 042
     Dates: start: 20120813, end: 20121207
  3. FLUOROURACIL [Suspect]
     Indication: COLORECTAL CANCER METASTATIC
     Dosage: 320 MG/M2 DAILY; 320 MG/M2, Q2W
     Route: 040
     Dates: start: 20120813, end: 20121207
  4. FLUOROURACIL [Suspect]
     Dosage: 1920 MG/M2 DAILY; 1920 MG/M2, Q2W, IV INFUSION
     Route: 042
     Dates: start: 20120813, end: 20121207
  5. BEVACIZUMAB [Suspect]
     Indication: COLORECTAL CANCER METASTATIC
     Dosage: 5 MG/KG DAILY; 5 MG/KG, Q2W
     Route: 042
     Dates: start: 20120813, end: 20121207

REACTIONS (1)
  - Hepatic haemorrhage [Fatal]
